FAERS Safety Report 17748364 (Version 2)
Quarter: 2020Q2

REPORT INFORMATION
  Report Type: Spontaneous
  Country: US (occurrence: US)
  Receive Date: 20200506
  Receipt Date: 20200526
  Transmission Date: 20200714
  Serious: No
  Sender: FDA-Public Use
  Company Number: US-AMGEN-USASP2020069989

PATIENT
  Age: 86 Year
  Sex: Female
  Weight: 71.66 kg

DRUGS (2)
  1. PROLIA [Suspect]
     Active Substance: DENOSUMAB
     Indication: OSTEOPOROSIS POSTMENOPAUSAL
     Dosage: 60 MILLIGRAM PER MILLILITRE
     Route: 058
     Dates: start: 20170419, end: 20190717
  2. FORTEO [Concomitant]
     Active Substance: TERIPARATIDE
     Dosage: UNK
     Dates: start: 202001, end: 2020

REACTIONS (7)
  - Arthralgia [Unknown]
  - Bone pain [Unknown]
  - Bone density decreased [Unknown]
  - Gait disturbance [Unknown]
  - Feeling abnormal [Unknown]
  - Vitamin D decreased [Unknown]
  - Inappropriate schedule of product administration [Unknown]
